FAERS Safety Report 19021797 (Version 4)
Quarter: 2021Q2

REPORT INFORMATION
  Report Type: Spontaneous
  Country: JP (occurrence: JP)
  Receive Date: 20210317
  Receipt Date: 20210607
  Transmission Date: 20210717
  Serious: Yes (Hospitalization, Other)
  Sender: FDA-Public Use
  Company Number: JP-DSJP-DSJ-2021-107136AA

PATIENT
  Age: 78 Year
  Sex: Male
  Weight: 53 kg

DRUGS (11)
  1. ARTIST [Suspect]
     Active Substance: CARVEDILOL
     Indication: HYPERTENSION
     Dosage: UNK
     Route: 048
     Dates: end: 20210216
  2. ERLEADA [Suspect]
     Active Substance: APALUTAMIDE
     Indication: PROSTATE CANCER
     Dosage: 240 MG, QD
     Route: 048
     Dates: start: 20201224, end: 20210204
  3. ADALAT [Suspect]
     Active Substance: NIFEDIPINE
     Indication: HYPERTENSION
     Dosage: UNK
     Route: 048
  4. PREDNISOLONE. [Concomitant]
     Active Substance: PREDNISOLONE
     Indication: PRODUCT USE IN UNAPPROVED INDICATION
     Dosage: 60 MG, QD
     Route: 048
     Dates: start: 202102
  5. NIFEDIPINE. [Suspect]
     Active Substance: NIFEDIPINE
     Indication: HYPERTENSION
     Dosage: 40 MG, QD
     Route: 065
     Dates: start: 2021, end: 20210216
  6. MICARDIS [Suspect]
     Active Substance: TELMISARTAN
     Indication: HYPERTENSION
     Dosage: UNK
     Route: 048
     Dates: end: 20210218
  7. CANDESARTAN                        /01349502/ [Concomitant]
     Active Substance: CANDESARTAN
     Indication: HYPERTENSION
     Dosage: 60 MG, QD
     Route: 065
     Dates: start: 202102
  8. NEXIUM [Suspect]
     Active Substance: ESOMEPRAZOLE MAGNESIUM
     Indication: PRODUCT USE IN UNAPPROVED INDICATION
     Dosage: UNK
     Route: 048
     Dates: end: 20210217
  9. LASIX [Suspect]
     Active Substance: FUROSEMIDE
     Indication: PRODUCT USE IN UNAPPROVED INDICATION
     Dosage: UNK
     Route: 065
  10. MAGMITT [Suspect]
     Active Substance: MAGNESIUM OXIDE
     Indication: PRODUCT USE IN UNAPPROVED INDICATION
     Dosage: UNK
     Route: 048
     Dates: end: 20210217
  11. LIXIANA TABLETS [Suspect]
     Active Substance: EDOXABAN TOSYLATE
     Indication: ATRIAL FIBRILLATION
     Dosage: UNK
     Route: 048
     Dates: start: 20210119, end: 20210216

REACTIONS (6)
  - Gait disturbance [Unknown]
  - Stevens-Johnson syndrome [Recovered/Resolved with Sequelae]
  - Eosinophil count increased [Recovered/Resolved]
  - Blister [Unknown]
  - Rash erythematous [Unknown]
  - Skin erosion [Unknown]

NARRATIVE: CASE EVENT DATE: 2021
